FAERS Safety Report 7975354-X (Version None)
Quarter: 2011Q4

REPORT INFORMATION
  Report Type: 
  Country: None (occurrence: None)
  Receive Date: 20111213
  Receipt Date: 20110926
  Transmission Date: 20120403
  Serious: No
  Sender: FDA-Public Use
  Company Number: US-AMGEN-USASP2011049789

PATIENT
  Age: 53 Year
  Sex: Male

DRUGS (1)
  1. ENBREL [Suspect]
     Indication: ANKYLOSING SPONDYLITIS
     Dosage: 50 MG, QWK
     Dates: start: 20080101

REACTIONS (6)
  - PALLOR [None]
  - BLOOD COUNT ABNORMAL [None]
  - MALAISE [None]
  - SCAR [None]
  - RASH [None]
  - INJECTION SITE HAEMATOMA [None]
